FAERS Safety Report 6463266-2 (Version None)
Quarter: 2009Q4

REPORT INFORMATION
  Report Type: 
  Country: None (occurrence: None)
  Receive Date: 20091130
  Receipt Date: 20090607
  Transmission Date: 20100525
  Serious: Yes (Other)
  Sender: FDA-Public Use
  Company Number: US-AMGEN-QUU350571

PATIENT
  Sex: Male

DRUGS (2)
  1. ENBREL [Suspect]
     Indication: RHEUMATOID ARTHRITIS
     Route: 058
  2. LEFLUNOMIDE [Concomitant]
     Route: 048

REACTIONS (18)
  - AMNESIA [None]
  - BACTERAEMIA [None]
  - BLOOD POTASSIUM DECREASED [None]
  - CONFUSIONAL STATE [None]
  - DIZZINESS [None]
  - FALL [None]
  - HEADACHE [None]
  - HYPERHIDROSIS [None]
  - INJECTION SITE PAIN [None]
  - INSOMNIA [None]
  - MUSCULAR WEAKNESS [None]
  - ORAL CANDIDIASIS [None]
  - PAIN [None]
  - SKIN LACERATION [None]
  - TREMOR [None]
  - VISION BLURRED [None]
  - VOMITING [None]
  - WEIGHT DECREASED [None]
